FAERS Safety Report 9180760 (Version 1)
Quarter: 2013Q1

REPORT INFORMATION
  Report Type: Spontaneous
  Country: US (occurrence: US)
  Receive Date: 20130322
  Receipt Date: 20130322
  Transmission Date: 20140127
  Serious: Yes (Death)
  Sender: FDA-Public Use
  Company Number: US-JNJFOC-20130313115

PATIENT
  Age: 73 Year
  Sex: Male

DRUGS (8)
  1. XARELTO [Suspect]
     Indication: PULMONARY EMBOLISM
     Route: 048
  2. SYMBICORT [Concomitant]
     Route: 065
  3. ACTOS [Concomitant]
     Route: 065
  4. OMEPRAZOLE [Concomitant]
     Route: 065
  5. VYTORIN [Concomitant]
     Route: 065
  6. RANEXA [Concomitant]
     Route: 065
  7. HYDROCHLOROTHIAZIDE [Concomitant]
     Route: 065
  8. MTX [Concomitant]
     Route: 065

REACTIONS (1)
  - Pancreatitis [Fatal]
